FAERS Safety Report 4355835-0 (Version None)
Quarter: 2004Q2

REPORT INFORMATION
  Report Type: 
  Country: None (occurrence: None)
  Receive Date: 20040505
  Receipt Date: 20040421
  Transmission Date: 20050107
  Serious: Yes (Hospitalization)
  Sender: FDA-Public Use
  Company Number: US-SHR-04-024255

PATIENT
  Age: 48 Year
  Sex: Female

DRUGS (4)
  1. BETASERON [Suspect]
     Indication: MULTIPLE SCLEROSIS
     Dosage: SUBCUTANEOUS
     Route: 058
  2. INSULIN [Concomitant]
  3. LEVOTHYROXINE SODIUM [Concomitant]
  4. NEURONTIN [Concomitant]

REACTIONS (3)
  - DIABETES MELLITUS INADEQUATE CONTROL [None]
  - DRY MOUTH [None]
  - MULTIPLE SCLEROSIS [None]
